FAERS Safety Report 24583636 (Version 2)
Quarter: 2024Q4

REPORT INFORMATION
  Report Type: Spontaneous
  Country: ES (occurrence: ES)
  Receive Date: 20241106
  Receipt Date: 20241121
  Transmission Date: 20250114
  Serious: Yes (Hospitalization)
  Sender: TEVA
  Company Number: None

PATIENT
  Age: 87 Year
  Sex: Male
  Weight: 105 kg

DRUGS (5)
  1. PREGABALIN [Suspect]
     Active Substance: PREGABALIN
     Indication: Back pain
     Dosage: PREGABALIN (3897A)
     Route: 048
     Dates: start: 20230505
  2. ELIGARD [Suspect]
     Active Substance: LEUPROLIDE ACETATE
     Indication: Prostate cancer
     Dosage: ELIGARD SEMI-ANNUAL 1 PREFILLED SYRINGE + 1 PREFILLED SYRINGE OF SOLVENT
     Route: 058
     Dates: start: 20220921
  3. ZALDIAR [Concomitant]
     Active Substance: ACETAMINOPHEN\TRAMADOL HYDROCHLORIDE
     Indication: Back pain
     Dosage: 37.5/325MG/8H ON DEMAND, ZALDIAR 37.5 MG/325 MG, 60 TABLETS
     Route: 048
     Dates: start: 20230510
  4. ASPIRIN [Concomitant]
     Active Substance: ASPIRIN
     Indication: Atrial fibrillation
     Dosage: ACETYLSALICALIC ACID (176A)
     Route: 065
  5. ABIRATERONE [Suspect]
     Active Substance: ABIRATERONE\ABIRATERONE ACETATE
     Indication: Prostate cancer metastatic
     Dosage: ABIRATERONE (8349A)
     Route: 048
     Dates: start: 20220419

REACTIONS (3)
  - Long QT syndrome [Unknown]
  - Atrioventricular block complete [Recovered/Resolved]
  - Syncope [Recovered/Resolved]

NARRATIVE: CASE EVENT DATE: 20240926
